FAERS Safety Report 5931807-7 (Version None)
Quarter: 2008Q4

REPORT INFORMATION
  Report Type: 
  Country: None (occurrence: None)
  Receive Date: 20081027
  Receipt Date: 20081014
  Transmission Date: 20090506
  Serious: Yes (Hospitalization)
  Sender: FDA-Public Use
  Company Number: US-ELI_LILLY_AND_COMPANY-US200809002138

PATIENT
  Age: 49 Year
  Sex: Female
  Weight: 64.853 kg

DRUGS (12)
  1. CYMBALTA [Suspect]
     Indication: NEURALGIA
     Dosage: 120 MG, DAILY (1/D)
     Route: 048
  2. TRAMADOL HCL [Interacting]
     Dosage: UNK, AS NEEDED
  3. BACLOFEN [Concomitant]
     Indication: MUSCLE SPASMS
     Dosage: 60 MG, DAILY (1/D)
     Dates: start: 20060101
  4. NORTRIPTYLINE HCL [Concomitant]
     Indication: DEPRESSION
     Dosage: 25 MG, UNK
     Dates: start: 20070101
  5. ALPRAZOLAM [Concomitant]
     Indication: ANXIETY
     Dosage: 0.5 D/F, 3/D
     Dates: start: 20060101
  6. ACETAMINOPHEN [Concomitant]
     Indication: PAIN
     Dosage: 650 D/F, EVERY 6 HRS
  7. TYSABRI [Concomitant]
     Indication: MULTIPLE SCLEROSIS
     Dosage: 300 MG, MONTHLY (1/M)
     Dates: start: 20080702
  8. LYRICA [Concomitant]
     Indication: PAIN
     Dosage: 600 D/F, DAILY (1/D)
  9. PROVIGIL [Concomitant]
     Indication: FATIGUE
     Dosage: 400 D/F, UNK
  10. ENABLEX                            /01760402/ [Concomitant]
     Indication: BLADDER SPASM
     Dosage: 30 D/F, UNK
  11. ADDERALL 10 [Concomitant]
     Indication: FATIGUE
     Dosage: 120 MG, UNK
  12. ARICEPT [Concomitant]
     Indication: MEMORY IMPAIRMENT
     Dosage: 10 MG, UNK

REACTIONS (6)
  - DRUG INTERACTION [None]
  - HEADACHE [None]
  - MALAISE [None]
  - MUSCLE RIGIDITY [None]
  - PYREXIA [None]
  - TACHYPNOEA [None]
